FAERS Safety Report 13226857 (Version 1)
Quarter: 2017Q1

REPORT INFORMATION
  Report Type: Spontaneous
  Country: JP (occurrence: JP)
  Receive Date: 20170213
  Receipt Date: 20170213
  Transmission Date: 20170428
  Serious: Yes (Hospitalization, Other)
  Sender: FDA-Public Use
  Company Number: JP-PFIZER INC-2016510188

PATIENT
  Age: 83 Year
  Sex: Female

DRUGS (2)
  1. LYRICA [Suspect]
     Active Substance: PREGABALIN
     Indication: POST HERPETIC NEURALGIA
     Dosage: 75 MG, 2X/DAY
     Route: 048
     Dates: start: 20160913, end: 20160920
  2. ROZEREM [Suspect]
     Active Substance: RAMELTEON
     Dosage: UNK

REACTIONS (4)
  - Loss of consciousness [Recovered/Resolved]
  - Activities of daily living impaired [Unknown]
  - Somnolence [Recovered/Resolved]
  - Parkinsonism [Unknown]

NARRATIVE: CASE EVENT DATE: 2016
